FAERS Safety Report 5208076-9 (Version None)
Quarter: 2006Q4

REPORT INFORMATION
  Report Type: 
  Country: None (occurrence: None)
  Receive Date: 20061027
  Receipt Date: 20060706
  Transmission Date: 20070319
  Serious: Yes (Hospitalization, Other)
  Sender: FDA-Public Use
  Company Number: 200611659US

PATIENT
  Age: 47 Year
  Sex: Female
  Weight: 81 kg

DRUGS (8)
  1. KETEK [Suspect]
     Indication: UPPER RESPIRATORY TRACT INFECTION
     Dosage: 400 MG BID
     Dates: start: 20060212, end: 20060201
  2. COUMADIN [Suspect]
     Indication: DEEP VEIN THROMBOSIS
  3. PHENYTOIN SODIUM [Concomitant]
  4. FENTANYL (DURAGESIC) [Concomitant]
  5. MORPHINE SULFATE (MS) [Concomitant]
  6. MACROGOL (MIRALAX) [Concomitant]
  7. TEGASEROD [Concomitant]
  8. ALLEGRA [Concomitant]

REACTIONS (4)
  - HAEMOPTYSIS [None]
  - INTERNATIONAL NORMALISED RATIO DECREASED [None]
  - INTERNATIONAL NORMALISED RATIO INCREASED [None]
  - PROTHROMBIN TIME PROLONGED [None]
